FAERS Safety Report 22030044 (Version 1)
Quarter: 2023Q1

REPORT INFORMATION
  Report Type: Spontaneous
  Country: US (occurrence: US)
  Receive Date: 20230223
  Receipt Date: 20230223
  Transmission Date: 20230418
  Serious: Yes (Other)
  Sender: FDA-Public Use
  Company Number: US-LANTHEUS-LMI-2022-01485

PATIENT
  Age: 74 Year
  Sex: Male
  Weight: 93 kg

DRUGS (1)
  1. DEFINITY [Suspect]
     Active Substance: PERFLUTREN
     Indication: Echocardiogram
     Dosage: UNK
     Route: 042
     Dates: start: 20221021, end: 20221021

REACTIONS (3)
  - Palpitations [Not Recovered/Not Resolved]
  - Atrial flutter [Not Recovered/Not Resolved]
  - Heart rate increased [Not Recovered/Not Resolved]

NARRATIVE: CASE EVENT DATE: 20221021
